FAERS Safety Report 7794705-2 (Version None)
Quarter: 2011Q3

REPORT INFORMATION
  Report Type: 
  Country: None (occurrence: None)
  Receive Date: 20110929
  Receipt Date: 20110916
  Transmission Date: 20111222
  Serious: Yes (Hospitalization)
  Sender: FDA-Public Use
  Company Number: DSA_47723_2011

PATIENT
  Age: 48 Year
  Sex: Female

DRUGS (1)
  1. BUPROPION HCL [Suspect]
     Indication: PRODUCT USED FOR UNKNOWN INDICATION
     Dosage: (DF) (2 DF)

REACTIONS (4)
  - MUSCLE TWITCHING [None]
  - TARDIVE DYSKINESIA [None]
  - BRUXISM [None]
  - DYSKINESIA [None]
